FAERS Safety Report 23184102 (Version 2)
Quarter: 2023Q4

REPORT INFORMATION
  Report Type: Spontaneous
  Country: FR (occurrence: FR)
  Receive Date: 20231115
  Receipt Date: 20231121
  Transmission Date: 20240109
  Serious: Yes (Death, Other)
  Sender: FDA-Public Use
  Company Number: FR-BAYER-2023A161186

PATIENT
  Age: 74 Year
  Sex: Female

DRUGS (2)
  1. XARELTO [Suspect]
     Active Substance: RIVAROXABAN
     Indication: Myelodysplastic syndrome
     Dosage: UNK
     Route: 048
     Dates: start: 20180719
  2. XARELTO [Suspect]
     Active Substance: RIVAROXABAN
     Indication: Emotional disorder
     Route: 048

REACTIONS (5)
  - Death [Fatal]
  - Myelodysplastic syndrome [Unknown]
  - Thrombocytopenia [Unknown]
  - Anxiety [Unknown]
  - Off label use [Unknown]

NARRATIVE: CASE EVENT DATE: 20190112
